FAERS Safety Report 7727983-6 (Version None)
Quarter: 2011Q3

REPORT INFORMATION
  Report Type: 
  Country: None (occurrence: None)
  Receive Date: 20110905
  Receipt Date: 20110825
  Transmission Date: 20111222
  Serious: No
  Sender: FDA-Public Use
  Company Number: US-BIOGENIDEC-2011BI033053

PATIENT
  Age: 59 Year
  Sex: Male

DRUGS (2)
  1. TYSABRI [Suspect]
     Indication: MULTIPLE SCLEROSIS
     Route: 042
     Dates: start: 20081218
  2. TYSABRI [Suspect]
     Route: 042
     Dates: start: 20060927, end: 20070228

REACTIONS (5)
  - COORDINATION ABNORMAL [None]
  - MUSCULAR WEAKNESS [None]
  - BALANCE DISORDER [None]
  - GAIT DISTURBANCE [None]
  - HYPOAESTHESIA [None]
